FAERS Safety Report 15954268 (Version 1)
Quarter: 2019Q1

REPORT INFORMATION
  Report Type: Report from Study
  Country: JP (occurrence: JP)
  Receive Date: 20190212
  Receipt Date: 20190212
  Transmission Date: 20190417
  Serious: Yes (Hospitalization, Other)
  Sender: FDA-Public Use
  Company Number: JP-BIOCODEX SA-201801700

PATIENT
  Age: 1 Year
  Sex: Female

DRUGS (13)
  1. LEVOCARNITINE. [Concomitant]
     Active Substance: LEVOCARNITINE
     Indication: NUTRITIONAL SUPPLEMENTATION
     Dosage: 3 ML, QD
     Route: 048
     Dates: start: 20170804, end: 20171107
  2. DIACOMIT [Suspect]
     Active Substance: STIRIPENTOL
     Dosage: 300 MG, QD
     Route: 048
     Dates: start: 20170804, end: 20170824
  3. LEVOCARNITINE. [Concomitant]
     Active Substance: LEVOCARNITINE
     Dosage: 5 ML, QD
     Route: 048
     Dates: start: 20171108
  4. SODIUM VALPROATE [Suspect]
     Active Substance: VALPROATE SODIUM
     Indication: SEVERE MYOCLONIC EPILEPSY OF INFANCY
     Dosage: 380 MG, QD
     Route: 048
     Dates: end: 20170912
  5. CLOBAZAM. [Concomitant]
     Active Substance: CLOBAZAM
     Indication: SEVERE MYOCLONIC EPILEPSY OF INFANCY
     Dosage: 2 MG, QD
     Route: 048
     Dates: end: 20170629
  6. DIACOMIT [Suspect]
     Active Substance: STIRIPENTOL
     Dosage: 300 MG, QD
     Route: 048
     Dates: start: 20170922, end: 20171129
  7. DIACOMIT [Suspect]
     Active Substance: STIRIPENTOL
     Indication: SEVERE MYOCLONIC EPILEPSY OF INFANCY
     Dosage: 200 MG, QD
     Route: 048
     Dates: start: 20170721, end: 20170803
  8. SODIUM VALPROATE [Suspect]
     Active Substance: VALPROATE SODIUM
     Dosage: 220 MG, QD
     Route: 048
     Dates: start: 20170913, end: 20171101
  9. DIAZEPAM. [Concomitant]
     Active Substance: DIAZEPAM
     Indication: SEVERE MYOCLONIC EPILEPSY OF INFANCY
     Dosage: 4 MG, PRN
     Route: 048
     Dates: start: 20170721
  10. DIACOMIT [Suspect]
     Active Substance: STIRIPENTOL
     Dosage: 400 MG, QD
     Route: 048
     Dates: start: 20170825, end: 20170921
  11. SODIUM VALPROATE [Suspect]
     Active Substance: VALPROATE SODIUM
     Dosage: 280 MG, QD
     Route: 048
     Dates: start: 20171102
  12. CLOBAZAM. [Concomitant]
     Active Substance: CLOBAZAM
     Dosage: 3 MG, QD
     Route: 048
     Dates: start: 20170630
  13. TRICLOFOS SODIUM [Concomitant]
     Active Substance: TRICLOFOS SODIUM
     Indication: PRODUCT USED FOR UNKNOWN INDICATION
     Dosage: 8 ML, QD
     Route: 048

REACTIONS (2)
  - Toxicity to various agents [Recovered/Resolved]
  - Epilepsy [Not Recovered/Not Resolved]

NARRATIVE: CASE EVENT DATE: 20170913
